FAERS Safety Report 13820774 (Version 1)
Quarter: 2017Q3

REPORT INFORMATION
  Report Type: Spontaneous
  Country: US (occurrence: US)
  Receive Date: 20170801
  Receipt Date: 20170801
  Transmission Date: 20171127
  Serious: No
  Sender: FDA-Public Use
  Company Number: US-TEVA-787170USA

PATIENT
  Age: 85 Year
  Sex: Female
  Weight: 58.57 kg

DRUGS (3)
  1. CALTRATE [Concomitant]
     Active Substance: CALCIUM CARBONATE
     Indication: BONE DISORDER
     Dosage: ONE IN THE MORNING AND ONE AT NIGHT
  2. DICLOFENAC W/MISOPROSTOL [Suspect]
     Active Substance: DICLOFENAC SODIUM\MISOPROSTOL
     Indication: INFLAMMATION
     Dosage: ^75.2 MG TWICE A DAY ONE IN THE MORNING AND ONE AT NIGHTWITH FOOD
     Route: 065
  3. CENTRUM SILVER [Concomitant]
     Active Substance: MINERALS\VITAMINS
     Dosage: 1 TABLET BY MOUTH A HALF AN HOUR BEFORE SHE EATS IN THE MORNING
     Route: 048

REACTIONS (2)
  - Arthralgia [Unknown]
  - Renal disorder [Recovering/Resolving]

NARRATIVE: CASE EVENT DATE: 20170404
